FAERS Safety Report 5858325-9 (Version None)
Quarter: 2008Q3

REPORT INFORMATION
  Report Type: 
  Country: None (occurrence: None)
  Receive Date: 20080822
  Receipt Date: 20080820
  Transmission Date: 20090109
  Serious: Yes (Death)
  Sender: FDA-Public Use
  Company Number: 2008-03058

PATIENT
  Age: 8 Year
  Sex: Male

DRUGS (1)
  1. VELCADE [Suspect]
     Indication: NEUROBLASTOMA

REACTIONS (1)
  - DISEASE PROGRESSION [None]
